FAERS Safety Report 6846978-8 (Version None)
Quarter: 2010Q3

REPORT INFORMATION
  Report Type: 
  Country: None (occurrence: None)
  Receive Date: 20100713
  Receipt Date: 20100630
  Transmission Date: 20110219
  Serious: Yes (Hospitalization)
  Sender: FDA-Public Use
  Company Number: TCI2010A02531

PATIENT
  Age: 58 Year
  Sex: Female

DRUGS (4)
  1. ACTOS [Suspect]
     Indication: DIABETES MELLITUS
     Dosage: 7.5 MG (7.5 MG, 1 D)  PER ORAL
     Route: 048
     Dates: start: 20100607, end: 20100624
  2. BASEN OD TABLETS 0.2 (VOGLIBOSE) [Suspect]
     Dosage: 0.6 MG (0.2 MG, 3 IN 1 D)  PER ORAL
     Route: 048
     Dates: start: 20100607, end: 20100624
  3. METFORMIN HCL [Suspect]
     Dosage: PER ORAL
     Route: 048
     Dates: start: 20100607, end: 20100624
  4. INDAPAMIDE [Suspect]
     Dosage: 1 MG (1 MG, 1 D) PER ORAL
     Route: 048
     Dates: start: 20100607, end: 20100624

REACTIONS (2)
  - PYREXIA [None]
  - RASH [None]
